FAERS Safety Report 8242532-4 (Version None)
Quarter: 2012Q1

REPORT INFORMATION
  Report Type: 
  Country: None (occurrence: None)
  Receive Date: 20120329
  Receipt Date: 20120316
  Transmission Date: 20120608
  Serious: Yes (Other)
  Sender: FDA-Public Use
  Company Number: PHHY2011DE18148

PATIENT
  Sex: Male
  Weight: 72 kg

DRUGS (3)
  1. ANTIEPILEPTICS [Concomitant]
  2. CARBAMAZEPINE [Interacting]
  3. GLEEVEC [Suspect]
     Indication: GASTROINTESTINAL STROMAL TUMOUR
     Dosage: 400 MG, UNK
     Route: 048
     Dates: start: 20100101

REACTIONS (2)
  - PARTIAL SEIZURES [None]
  - DRUG INTERACTION [None]
